FAERS Safety Report 9253497 (Version 1)
Quarter: 2013Q2

REPORT INFORMATION
  Report Type: Spontaneous
  Country: US (occurrence: US)
  Receive Date: 20130425
  Receipt Date: 20130425
  Transmission Date: 20140414
  Serious: No
  Sender: FDA-Public Use
  Company Number: US-BIOGENIDEC-2013BI036062

PATIENT
  Sex: Male

DRUGS (1)
  1. TYSABRI [Suspect]
     Indication: MULTIPLE SCLEROSIS
     Route: 042
     Dates: start: 20130401

REACTIONS (6)
  - Conjunctivitis infective [Not Recovered/Not Resolved]
  - Contusion [Recovered/Resolved]
  - Headache [Recovered/Resolved]
  - Sinusitis [Not Recovered/Not Resolved]
  - Laryngitis [Not Recovered/Not Resolved]
  - Infusion site pain [Recovered/Resolved]
